FAERS Safety Report 24035106 (Version 1)
Quarter: 2024Q3

REPORT INFORMATION
  Report Type: Report from Study
  Country: DE (occurrence: DE)
  Receive Date: 20240701
  Receipt Date: 20240701
  Transmission Date: 20241016
  Serious: No
  Sender: ROCHE
  Company Number: DE-ROCHE-3370326

PATIENT
  Age: 6 Year
  Sex: Female
  Weight: 15.0 kg

DRUGS (3)
  1. EVRYSDI [Suspect]
     Active Substance: RISDIPLAM
     Indication: Spinal muscular atrophy
     Dosage: LAST DOSE ON 23/MAY/2023
     Route: 048
     Dates: start: 20211118
  2. EVRYSDI [Suspect]
     Active Substance: RISDIPLAM
     Dosage: LAST DOSE ON 31/MAY/2024
     Route: 048
     Dates: start: 20211214
  3. CHOLECALCIFEROL [Concomitant]
     Active Substance: CHOLECALCIFEROL

REACTIONS (3)
  - Viral infection [Recovered/Resolved]
  - Diarrhoea [Recovered/Resolved]
  - COVID-19 [Recovered/Resolved]

NARRATIVE: CASE EVENT DATE: 20230215
